FAERS Safety Report 10419309 (Version 1)
Quarter: 2014Q3

REPORT INFORMATION
  Report Type: Spontaneous
  Country: US (occurrence: None)
  Receive Date: 20140701
  Receipt Date: 20140701
  Transmission Date: 20150326
  Serious: No
  Sender: FDA-Public Use
  Company Number: 1000067795

PATIENT
  Age: 59 Year
  Sex: Female

DRUGS (4)
  1. ANTIDEPRESSANT (NOS) (ANTIDEPRESSANT (NOS)) (ANTIDEPRESSANT (NOS)) [Concomitant]
  2. LINZESS [Suspect]
     Active Substance: LINACLOTIDE
     Indication: GASTROINTESTINAL DISORDER
     Dosage: 145 MCG (145 MCG, 1 IN 1 D), ORAL
     Dates: start: 201404, end: 201404
  3. PROBIOTIC (NOS) (PROBIOTIC NOS)) (PROBIOTIC (NOS)) [Concomitant]
  4. COLACE (DOCUSATE SDIUM) (DOCUSATE SODIUM) [Concomitant]

REACTIONS (4)
  - Nausea [None]
  - Abdominal distension [None]
  - Flatulence [None]
  - Off label use [None]

NARRATIVE: CASE EVENT DATE: 201404
